FAERS Safety Report 10678635 (Version 1)
Quarter: 2014Q4

REPORT INFORMATION
  Report Type: Report from Study
  Country: US (occurrence: US)
  Receive Date: 20141229
  Receipt Date: 20141229
  Transmission Date: 20150529
  Serious: Yes (Death, Other)
  Sender: FDA-Public Use
  Company Number: US-SA-2014SA177940

PATIENT

DRUGS (5)
  1. CARBOPLATIN. [Suspect]
     Active Substance: CARBOPLATIN
     Indication: ACUTE MYELOID LEUKAEMIA
     Dosage: ADMINISTEED OVER 120 HOURS
     Route: 041
  2. FLUDARABINE PHOSPHATE. [Suspect]
     Active Substance: FLUDARABINE PHOSPHATE
     Indication: ACUTE MYELOID LEUKAEMIA
     Dosage: DRUG WAS ADMINISTEED OVER 30 MIN
     Route: 042
  3. TOPOTECAN [Suspect]
     Active Substance: TOPOTECAN\TOPOTECAN HYDROCHLORIDE
     Indication: ACUTE MYELOID LEUKAEMIA
     Dosage: ADMINISTERED OVER 72 HRS
     Route: 041
  4. THALIDOMIDE [Suspect]
     Active Substance: THALIDOMIDE
     Indication: ACUTE MYELOID LEUKAEMIA
     Dosage: DOSE: ORAL 100 MG/DAY FOR 1 WEEK AND 200 MG/DAY AFTER THAT
     Route: 065
  5. PYRIDOXINE [Concomitant]
     Active Substance: PYRIDOXINE
     Indication: PROPHYLAXIS

REACTIONS (3)
  - Bone marrow failure [Unknown]
  - Hepatic failure [Fatal]
  - Infection [Fatal]
